FAERS Safety Report 7730082-0 (Version None)
Quarter: 2011Q3

REPORT INFORMATION
  Report Type: 
  Country: None (occurrence: None)
  Receive Date: 20110906
  Receipt Date: 20110830
  Transmission Date: 20111222
  Serious: Yes (Death)
  Sender: FDA-Public Use
  Company Number: DE-ROCHE-799965

PATIENT
  Age: 65 Year
  Sex: Male
  Weight: 75 kg

DRUGS (7)
  1. TRETINOIN [Suspect]
     Dosage: DOSE: 45 MG
     Route: 048
     Dates: start: 20110627, end: 20110704
  2. PANTOPRAZOLE [Concomitant]
     Indication: PROPHYLAXIS
  3. METOPROLOL [Concomitant]
     Indication: HYPERTENSION
  4. ETOPOSIDE [Suspect]
     Route: 065
     Dates: start: 20110622, end: 20110624
  5. TORSEMIDE [Concomitant]
     Indication: HYPERTENSION
  6. IDARUBICIN HCL [Suspect]
     Dosage: FORM: SOLUTION FOR INJECTION
     Route: 065
     Dates: start: 20110622, end: 20110624
  7. CYTARABINE [Suspect]
     Dosage: DOSE: UNKNOWN
     Route: 065
     Dates: start: 20110622, end: 20110628

REACTIONS (1)
  - SEPSIS [None]
